FAERS Safety Report 13276408 (Version 2)
Quarter: 2017Q2

REPORT INFORMATION
  Report Type: Spontaneous
  Country: JP (occurrence: JP)
  Receive Date: 20170228
  Receipt Date: 20170420
  Transmission Date: 20170830
  Serious: Yes (Other)
  Sender: FDA-Public Use
  Company Number: PHHY2017JP030509

PATIENT
  Age: 38 Year
  Sex: Female

DRUGS (1)
  1. IMUSERA [Suspect]
     Active Substance: FINGOLIMOD HYDROCHLORIDE
     Indication: PRODUCT USED FOR UNKNOWN INDICATION
     Dosage: UNK
     Route: 048
     Dates: start: 201405

REACTIONS (2)
  - Multiple sclerosis relapse [Recovered/Resolved]
  - Multiple sclerosis [Recovered/Resolved]
